FAERS Safety Report 15057417 (Version 1)
Quarter: 2018Q2

REPORT INFORMATION
  Report Type: Report from Study
  Country: FR (occurrence: FR)
  Receive Date: 20180625
  Receipt Date: 20180625
  Transmission Date: 20180711
  Serious: Yes (Death)
  Sender: FDA-Public Use
  Company Number: FR-ACCORD-068583

PATIENT
  Sex: Male

DRUGS (5)
  1. ETOPOSIDE. [Suspect]
     Active Substance: ETOPOSIDE
     Indication: OSTEOSARCOMA
     Dosage: 75 MG/M2, CYCLIC (6 M + 2 EI PRE-OPERATIVELY)
  2. DOXORUBICIN [Suspect]
     Active Substance: DOXORUBICIN
     Indication: OSTEOSARCOMA
     Dosage: 37.5 MG/M2 CYCLIC (6 M-AP POST-OPERATIVELY)
  3. IFOSFAMIDE. [Suspect]
     Active Substance: IFOSFAMIDE
     Indication: OSTEOSARCOMA
     Dosage: 3 G/M2, CYCLIC (6 M+ 2 EI PRE-OPERATIVELY)
  4. METHOTREXATE. [Suspect]
     Active Substance: METHOTREXATE
     Indication: OSTEOSARCOMA
     Dosage: 12 G/M2 CYCLIC (6 M-AP POST-OPERATIVELY)
  5. CISPLATIN. [Suspect]
     Active Substance: CISPLATIN
     Indication: OSTEOSARCOMA
     Dosage: 120 MG/M2, CYCLIC (6 M-AP POST-OPERATIVELY)

REACTIONS (3)
  - Off label use [Unknown]
  - Toxicity to various agents [Fatal]
  - Cardiomyopathy [Fatal]
